APPROVED DRUG PRODUCT: DOXYCYCLINE HYCLATE
Active Ingredient: DOXYCYCLINE HYCLATE
Strength: EQ 50MG BASE
Dosage Form/Route: CAPSULE;ORAL
Application: A062434 | Product #001
Applicant: PAR PHARMACEUTICAL INC
Approved: Oct 19, 1984 | RLD: No | RS: No | Type: DISCN